FAERS Safety Report 18632680 (Version 1)
Quarter: 2020Q4

REPORT INFORMATION
  Report Type: Report from Study
  Country: US (occurrence: US)
  Receive Date: 20201218
  Receipt Date: 20201218
  Transmission Date: 20210114
  Serious: Yes (Hospitalization)
  Sender: FDA-Public Use
  Company Number: US-BAYER-2020-264471

PATIENT
  Age: 40 Year
  Sex: Female
  Weight: 147.85 kg

DRUGS (2)
  1. ADEMPAS [Suspect]
     Active Substance: RIOCIGUAT
     Indication: PULMONARY ARTERIAL HYPERTENSION
     Dosage: 2.0 MG, TID
     Route: 048
     Dates: start: 2020
  2. ADEMPAS [Suspect]
     Active Substance: RIOCIGUAT
     Indication: PULMONARY ARTERIAL HYPERTENSION
     Dosage: UNK
     Dates: start: 20200825

REACTIONS (6)
  - Pain in extremity [Unknown]
  - Headache [Unknown]
  - Hypokalaemia [Not Recovered/Not Resolved]
  - Oedema peripheral [Unknown]
  - Somnolence [Unknown]
  - Anxiety [None]

NARRATIVE: CASE EVENT DATE: 20201201
